FAERS Safety Report 7627016-6 (Version None)
Quarter: 2011Q3

REPORT INFORMATION
  Report Type: 
  Country: None (occurrence: None)
  Receive Date: 20110721
  Receipt Date: 20110714
  Transmission Date: 20111222
  Serious: Yes (Other)
  Sender: FDA-Public Use
  Company Number: PHHY2011IR63998

PATIENT

DRUGS (7)
  1. CYCLOSPORINE [Suspect]
     Indication: IMMUNOSUPPRESSION
     Dosage: 150 MG PER DAY
  2. MYCOPHENOLATE MOFETIL [Concomitant]
     Indication: IMMUNOSUPPRESSION
     Dosage: 2 G PER DAY
  3. GEMFIBROZIL [Concomitant]
     Indication: HYPERLIPIDAEMIA
     Dosage: 300 MG PER DAY
  4. PREDNISOLONE [Concomitant]
     Indication: IMMUNOSUPPRESSION
     Dosage: 5 MG PER DAY
  5. EZETIMIBE [Interacting]
     Indication: HYPERLIPIDAEMIA
     Dosage: UNK
  6. PREDNISOLONE [Concomitant]
     Dosage: 1000 MG, 4 PULSES
  7. ATORVASTATIN [Concomitant]
     Indication: HYPERLIPIDAEMIA
     Dosage: 20 MG PER DAY

REACTIONS (7)
  - DRUG INEFFECTIVE [None]
  - LOW DENSITY LIPOPROTEIN DECREASED [None]
  - BLOOD TRIGLYCERIDES INCREASED [None]
  - DRUG LEVEL DECREASED [None]
  - TRANSPLANT REJECTION [None]
  - BLOOD CHOLESTEROL ABNORMAL [None]
  - DRUG INTERACTION [None]
